FAERS Safety Report 17521043 (Version 1)
Quarter: 2020Q1

REPORT INFORMATION
  Report Type: Spontaneous
  Country: ES (occurrence: ES)
  Receive Date: 20200310
  Receipt Date: 20200310
  Transmission Date: 20200409
  Serious: Yes (Hospitalization)
  Sender: FDA-Public Use
  Company Number: ES-MYLANLABS-2020M1024252

PATIENT
  Age: 84 Year
  Sex: Male

DRUGS (2)
  1. ATORVASTATIN [Suspect]
     Active Substance: ATORVASTATIN
     Indication: HYPERCHOLESTEROLAEMIA
     Dosage: 80 MILLIGRAM, QD
     Route: 048
     Dates: start: 20190621, end: 20191217
  2. BRILIQUE [Interacting]
     Active Substance: TICAGRELOR
     Indication: ACUTE MYOCARDIAL INFARCTION
     Dosage: 90 MILLIGRAM, BID
     Route: 048
     Dates: start: 20190621

REACTIONS (4)
  - Mixed liver injury [Recovered/Resolved]
  - Acute kidney injury [Recovered/Resolved]
  - Drug interaction [Unknown]
  - Rhabdomyolysis [Recovered/Resolved]

NARRATIVE: CASE EVENT DATE: 20191218
